FAERS Safety Report 23491288 (Version 1)
Quarter: 2024Q1

REPORT INFORMATION
  Report Type: Report from Study
  Country: US (occurrence: US)
  Receive Date: 20240207
  Receipt Date: 20240207
  Transmission Date: 20240409
  Serious: Yes (Hospitalization)
  Sender: FDA-Public Use
  Company Number: US-ABBVIE-5444048

PATIENT
  Sex: Male
  Weight: 84.821 kg

DRUGS (18)
  1. HUMIRA [Suspect]
     Active Substance: ADALIMUMAB
     Indication: Rheumatoid arthritis
     Dosage: INJECT 1 MG BY SUBCUTANEOUS INJECTION. EVERY OTHER WEEK ON WEDNESDAY
     Route: 058
  2. HUMIRA [Suspect]
     Active Substance: ADALIMUMAB
     Indication: Rheumatoid arthritis
     Route: 058
  3. LIPITOR [Concomitant]
     Active Substance: ATORVASTATIN CALCIUM
     Indication: Product used for unknown indication
     Dosage: TAKE 1 TABLET BY MOUTH EVERY DAY IN THE EVENING?FORM STRENGTH: 10MG
  4. OCUVITE [Concomitant]
     Active Substance: VITAMINS
     Indication: Product used for unknown indication
     Dosage: TAKE 1 TABLET BY MOUTH DAILY
  5. OXYGEN [Concomitant]
     Active Substance: OXYGEN
     Indication: Product used for unknown indication
     Dosage: ADMINISTER 3 L/MIN IN EACH NOSTRIL SEE ADMINISTRATION INSTRUCTIONS. O2 WITH EXERTION
  6. PROTONIX [Concomitant]
     Active Substance: PANTOPRAZOLE SODIUM
     Indication: Product used for unknown indication
     Dosage: TAKE 1 TABLET (40 MG) BY MOUTH TWO TIMES DAILY, BEFORE BREAKFAST AND BEDTIME.? FORM STRENGTH: 40 MG
  7. BIOTIN [Concomitant]
     Active Substance: BIOTIN
     Indication: Product used for unknown indication
     Dosage: TAKE 1 CAPSULE BY MOUTH DAILY?FORM STRENGTH: 10000 MICROGRAM
  8. BAYER AM [Concomitant]
     Indication: Product used for unknown indication
     Dosage: FORM STRENGTH: 81 MG
  9. VANCOCIN [Concomitant]
     Active Substance: VANCOMYCIN HYDROCHLORIDE
     Indication: Product used for unknown indication
     Dosage: FORM STRENGTH: 125 MG
  10. JARDIANCE [Concomitant]
     Active Substance: EMPAGLIFLOZIN
     Indication: Product used for unknown indication
     Dosage: TAKE 25 MG BY MOUTH DAILY EARLY MORNING.?FORM STRENGTH: 25MG
  11. LOMOTIL [Concomitant]
     Active Substance: ATROPINE SULFATE\DIPHENOXYLATE HYDROCHLORIDE
     Indication: Diarrhoea
     Dosage: TIME INTERVAL: 0.33333333 DAYS: 2.5-0.025 MG TABLET, TAKE 1 TABLET BY MOUTH 3 TIMES DAILY AS NEEDED
  12. BENTYL [Concomitant]
     Active Substance: DICYCLOMINE HYDROCHLORIDE
     Indication: Product used for unknown indication
     Dosage: TAKE 1 CAPSULE BY MOUTH 2 TIMES DAILY.?FORM STRENGTH: 10MG
  13. TYLENOL ARTHRITIS PAIN [Concomitant]
     Active Substance: ACETAMINOPHEN
     Indication: Pain
     Dosage: TAKE 1,300 MG BY MOUTH 2 TIMES DAILY AS NEEDED?FORM STRENGTH: 650 MG
     Route: 048
  14. INSULIN DETEMIR DCI [Concomitant]
     Indication: Product used for unknown indication
     Dosage: 100 UNIT/ML PEN SYRINGE, INJECT 30 UNITS BY SUBCUTANEOUS INJECTION 2 TIMES DAILY?INSULIN DETEMIR ...
  15. ACULAR [Concomitant]
     Active Substance: KETOROLAC TROMETHAMINE
     Indication: Product used for unknown indication
     Dosage: INSTILL 1 DROP IN BOTH EYES ONCE A DAY, SOLUTION?FORM STRENGTH: 0.5PERCENT
  16. TOPROL XL [Concomitant]
     Active Substance: METOPROLOL SUCCINATE
     Indication: Product used for unknown indication
     Dosage: TAKE 1 TABLET BY MOUTH DAILY?FORM STRENGTH: 25MG
     Route: 048
  17. ARAVA [Concomitant]
     Active Substance: LEFLUNOMIDE
     Indication: Product used for unknown indication
     Dosage: TAKE 1 TABLET (20 MG) BY MOUTH DAILY.?FORM STRENGTH: 20 MG
     Route: 048
  18. BENICAR [Concomitant]
     Active Substance: OLMESARTAN MEDOXOMIL
     Indication: Product used for unknown indication
     Dosage: TAKE 1 TABLET BY MOUTH EVERY DAY? FORM STRENGTH: 40MG
     Route: 048

REACTIONS (2)
  - Duodenal ulcer [Unknown]
  - Oesophageal ulcer [Unknown]
